FAERS Safety Report 7794977-4 (Version None)
Quarter: 2011Q4

REPORT INFORMATION
  Report Type: 
  Country: None (occurrence: None)
  Receive Date: 20111004
  Receipt Date: 20110929
  Transmission Date: 20120403
  Serious: Yes (Life-Threatening, Other)
  Sender: FDA-Public Use
  Company Number: PHHY2011JP74821

PATIENT
  Age: 53 Year
  Sex: Female

DRUGS (7)
  1. CLOZARIL [Suspect]
     Dosage: 150 MG, DAILY
     Route: 048
     Dates: start: 20110819, end: 20110819
  2. RISPERDAL [Concomitant]
  3. CLOZARIL [Suspect]
     Indication: SCHIZOPHRENIA
     Dosage: UNK
     Route: 048
     Dates: start: 20110726, end: 20110814
  4. LODOPIN [Concomitant]
  5. ZYPREXA [Concomitant]
  6. CLOZARIL [Suspect]
     Dosage: 200 MG, DAILY
     Route: 048
     Dates: start: 20110815, end: 20110816
  7. CLOZARIL [Suspect]
     Dosage: 300 MG, DAILY
     Route: 048
     Dates: start: 20110817, end: 20110818

REACTIONS (4)
  - LOSS OF CONSCIOUSNESS [None]
  - CARDIAC ARREST [None]
  - URINARY TRACT INFECTION [None]
  - PYREXIA [None]
